FAERS Safety Report 4383158-2 (Version None)
Quarter: 2004Q2

REPORT INFORMATION
  Report Type: 
  Country: None (occurrence: None)
  Receive Date: 20040623
  Receipt Date: 20040614
  Transmission Date: 20050107
  Serious: Yes (Other)
  Sender: FDA-Public Use
  Company Number: PHBS2004SE07831

PATIENT
  Age: 55 Year
  Sex: Female

DRUGS (1)
  1. TEGRETOL [Suspect]
     Route: 048

REACTIONS (4)
  - BRAIN OEDEMA [None]
  - CONVULSION [None]
  - HYPOKALAEMIA [None]
  - HYPONATRAEMIA [None]
